FAERS Safety Report 7344957-8 (Version None)
Quarter: 2011Q1

REPORT INFORMATION
  Report Type: 
  Country: None (occurrence: None)
  Receive Date: 20110310
  Receipt Date: 20110303
  Transmission Date: 20110831
  Serious: Yes (Hospitalization)
  Sender: FDA-Public Use
  Company Number: A0864136A

PATIENT
  Sex: Female
  Weight: 57 kg

DRUGS (11)
  1. SYNTHROID [Concomitant]
     Route: 065
  2. NAPROXEN [Concomitant]
     Route: 065
  3. PHOSPHATE [Concomitant]
     Route: 065
  4. SENOKOT [Concomitant]
     Route: 065
  5. XELODA [Suspect]
     Dosage: 1650MG TWICE PER DAY
     Route: 048
     Dates: start: 20100522
  6. HYDROCHLOROTHIAZIDE [Concomitant]
     Route: 065
  7. UNSPECIFIED MEDICATION [Concomitant]
     Route: 065
  8. TYLENOL [Concomitant]
     Route: 065
  9. TYKERB [Suspect]
     Dosage: 1250MG PER DAY
     Route: 048
     Dates: start: 20100603
  10. BENADRYL [Concomitant]
     Route: 065
  11. RADIOTHERAPY [Concomitant]

REACTIONS (4)
  - DIARRHOEA [None]
  - PALMAR-PLANTAR ERYTHRODYSAESTHESIA SYNDROME [None]
  - GRAND MAL CONVULSION [None]
  - DIZZINESS [None]
